FAERS Safety Report 18592044 (Version 13)
Quarter: 2023Q1

REPORT INFORMATION
  Report Type: Report from Study
  Country: JP (occurrence: JP)
  Receive Date: 20201208
  Receipt Date: 20230304
  Transmission Date: 20230418
  Serious: Yes (Hospitalization)
  Sender: FDA-Public Use
  Company Number: JP-ABBVIE-20K-087-3266854-00

PATIENT
  Age: 47 Year
  Sex: Female
  Weight: 56 kg

DRUGS (8)
  1. CARBIDOPA\LEVODOPA [Suspect]
     Active Substance: CARBIDOPA\LEVODOPA
     Indication: Parkinson^s disease
     Dosage: MORE THAN A YEAR,MD: 4.8 ML, CD: 3.2 ML/HR A-16 HRS, ED: 1 ML/UNIT A-3
     Route: 050
     Dates: start: 20180216
  2. CARBIDOPA\LEVODOPA [Suspect]
     Active Substance: CARBIDOPA\LEVODOPA
     Route: 050
  3. CARBIDOPA\LEVODOPA [Suspect]
     Active Substance: CARBIDOPA\LEVODOPA
     Route: 050
  4. CARBIDOPA\LEVODOPA [Suspect]
     Active Substance: CARBIDOPA\LEVODOPA
     Route: 050
  5. CARBIDOPA\LEVODOPA [Suspect]
     Active Substance: CARBIDOPA\LEVODOPA
     Route: 050
  6. CARBIDOPA\LEVODOPA [Suspect]
     Active Substance: CARBIDOPA\LEVODOPA
     Route: 050
  7. CARBIDOPA\LEVODOPA [Suspect]
     Active Substance: CARBIDOPA\LEVODOPA
     Route: 050
  8. ROTIGOTINE [Concomitant]
     Active Substance: ROTIGOTINE
     Indication: Parkinson^s disease
     Dosage: 13.5 MILLIGRAM
     Route: 062

REACTIONS (36)
  - Thermal burn [Recovering/Resolving]
  - Incorrect route of product administration [Unknown]
  - Device use issue [Unknown]
  - Dysphagia [Recovering/Resolving]
  - Product administration error [Unknown]
  - Off label use [Unknown]
  - Incontinence [Not Recovered/Not Resolved]
  - Mobility decreased [Unknown]
  - Pyrexia [Not Recovered/Not Resolved]
  - Fall [Recovering/Resolving]
  - Fall [Not Recovered/Not Resolved]
  - Fall [Recovering/Resolving]
  - Fall [Recovering/Resolving]
  - Fall [Not Recovered/Not Resolved]
  - Akinesia [Not Recovered/Not Resolved]
  - On and off phenomenon [Not Recovered/Not Resolved]
  - On and off phenomenon [Recovered/Resolved]
  - On and off phenomenon [Unknown]
  - On and off phenomenon [Unknown]
  - On and off phenomenon [Not Recovered/Not Resolved]
  - On and off phenomenon [Unknown]
  - Freezing phenomenon [Recovered/Resolved]
  - Bradykinesia [Unknown]
  - Dyskinesia [Not Recovered/Not Resolved]
  - Dyskinesia [Recovering/Resolving]
  - Dyskinesia [Not Recovered/Not Resolved]
  - Stoma site hypergranulation [Recovering/Resolving]
  - Stoma site discharge [Not Recovered/Not Resolved]
  - Stoma site pain [Not Recovered/Not Resolved]
  - Device leakage [Recovered/Resolved]
  - Device breakage [Unknown]
  - Device issue [Unknown]
  - Device physical property issue [Recovered/Resolved]
  - Stoma site extravasation [Not Recovered/Not Resolved]
  - Reflux gastritis [Not Recovered/Not Resolved]
  - Mobility decreased [Unknown]

NARRATIVE: CASE EVENT DATE: 20180604
